FAERS Safety Report 11132067 (Version 1)
Quarter: 2015Q2

REPORT INFORMATION
  Report Type: Spontaneous
  Country: US (occurrence: None)
  Receive Date: 20150521
  Receipt Date: 20150521
  Transmission Date: 20150821
  Serious: Yes (Disabling, Other)
  Sender: FDA-Public Use
  Company Number: None

PATIENT
  Age: 48 Year
  Sex: Female

DRUGS (2)
  1. FLUOROMETHOLONE 0.1% UNKNOWN [Suspect]
     Active Substance: FLUOROMETHOLONE
  2. PREDNISOLONE ACETATE 1% UNKNOWN [Suspect]
     Active Substance: PREDNISOLONE ACETATE
     Indication: UVEITIS
     Dosage: 4-5X DAY
     Route: 047
     Dates: start: 20050909, end: 20051013

REACTIONS (5)
  - Vision blurred [None]
  - Product substitution issue [None]
  - Instillation site pain [None]
  - Instillation site vesicles [None]
  - Instillation site foreign body sensation [None]

NARRATIVE: CASE EVENT DATE: 20150427
